FAERS Safety Report 5125648-0 (Version None)
Quarter: 2006Q4

REPORT INFORMATION
  Report Type: 
  Country: None (occurrence: None)
  Receive Date: 20061012
  Receipt Date: 20060929
  Transmission Date: 20070319
  Serious: Yes (Other)
  Sender: FDA-Public Use
  Company Number: GR-BAYER-200614376GDS

PATIENT
  Age: 16 Year
  Sex: Male
  Weight: 70 kg

DRUGS (4)
  1. AMOXIL 500 [Suspect]
     Indication: TOOTHACHE
     Dosage: TOTAL DAILY DOSE: 1500 MG  UNIT DOSE: 500 MG
     Route: 048
     Dates: start: 20060804, end: 20060809
  2. ASPIRIN [Suspect]
     Indication: TOOTH ABSCESS
     Dosage: TOTAL DAILY DOSE: 500 MG  UNIT DOSE: 500 MG
     Route: 048
     Dates: start: 20060802, end: 20060802
  3. PONSTAN [Suspect]
     Indication: TOOTH ABSCESS
     Dosage: TOTAL DAILY DOSE: 500 MG  UNIT DOSE: 500 MG
     Route: 048
     Dates: start: 20060802, end: 20060809
  4. NIFLAMOL [Suspect]
     Indication: TOOTH ABSCESS
     Route: 048
     Dates: start: 20060802, end: 20060809

REACTIONS (2)
  - ERYTHEMA MULTIFORME [None]
  - URTICARIA GENERALISED [None]
